FAERS Safety Report 20136406 (Version 2)
Quarter: 2021Q4

REPORT INFORMATION
  Report Type: Spontaneous
  Country: US (occurrence: US)
  Receive Date: 20211201
  Receipt Date: 20211223
  Transmission Date: 20220304
  Serious: No
  Sender: FDA-Public Use
  Company Number: US-009507513-2111USA002717

PATIENT
  Sex: Male

DRUGS (2)
  1. KEYTRUDA [Suspect]
     Active Substance: PEMBROLIZUMAB
     Indication: Renal cell carcinoma
     Dosage: UNK
  2. LENVATINIB MESYLATE [Suspect]
     Active Substance: LENVATINIB MESYLATE
     Indication: Renal cell carcinoma
     Dosage: 20 MILLIGRAM, DAILY
     Dates: start: 20210901

REACTIONS (9)
  - Ill-defined disorder [Recovered/Resolved]
  - Ill-defined disorder [Unknown]
  - Dysphonia [Unknown]
  - Blister [Recovering/Resolving]
  - Abdominal discomfort [Unknown]
  - Pain in extremity [Unknown]
  - Decreased appetite [Recovered/Resolved]
  - Nausea [Unknown]
  - Diarrhoea [Unknown]

NARRATIVE: CASE EVENT DATE: 20210901
